FAERS Safety Report 9481360 (Version 1)
Quarter: 2013Q3

REPORT INFORMATION
  Report Type: Spontaneous
  Country: US (occurrence: US)
  Receive Date: 20130828
  Receipt Date: 20130828
  Transmission Date: 20140515
  Serious: Yes (Hospitalization)
  Sender: FDA-Public Use
  Company Number: US-AMGEN-KDL162025

PATIENT
  Age: 55 Year
  Sex: Female

DRUGS (2)
  1. ENBREL [Suspect]
     Indication: RHEUMATOID ARTHRITIS
     Dosage: 25 MG, 2 TIMES/WK
     Route: 058
     Dates: start: 20041101, end: 20050227
  2. ENBREL [Suspect]
     Indication: ANKYLOSING SPONDYLITIS

REACTIONS (10)
  - Small intestinal obstruction [Unknown]
  - Acute respiratory distress syndrome [Unknown]
  - Ascites [Unknown]
  - Tracheostomy [Unknown]
  - Lung disorder [Unknown]
  - Surgery [Unknown]
  - Lung infection [Unknown]
  - Abasia [Unknown]
  - Dyspnoea [Unknown]
  - Fatigue [Unknown]
